FAERS Safety Report 15049215 (Version 1)
Quarter: 2018Q2

REPORT INFORMATION
  Report Type: Spontaneous
  Country: AU (occurrence: AU)
  Receive Date: 20180622
  Receipt Date: 20180622
  Transmission Date: 20180711
  Serious: Yes (Life-Threatening, Hospitalization, Other)
  Sender: FDA-Public Use
  Company Number: AU-APOTEX-2018AP016165

PATIENT
  Age: 45 Year
  Sex: Male

DRUGS (5)
  1. MYCOPHENOLATE [Suspect]
     Active Substance: MYCOPHENOLIC ACID
     Indication: IMMUNOSUPPRESSION
     Dosage: 1500 MG, BID
     Route: 065
  2. TACROLIMUS. [Suspect]
     Active Substance: TACROLIMUS
     Indication: IMMUNOSUPPRESSION
     Dosage: 3 MG, BID
     Route: 065
  3. PREDNISOLONE. [Suspect]
     Active Substance: PREDNISOLONE
     Dosage: 80 MG, DAILY
     Route: 065
  4. PREDNISOLONE. [Suspect]
     Active Substance: PREDNISOLONE
     Indication: IMMUNOSUPPRESSION
     Dosage: 30 MG, DAILY
     Route: 065
  5. METHYLPREDNISOLONE. [Concomitant]
     Active Substance: METHYLPREDNISOLONE
     Indication: EVIDENCE BASED TREATMENT
     Dosage: 1000 MG, DAILY
     Route: 065

REACTIONS (11)
  - Gallbladder necrosis [Recovered/Resolved]
  - Post transplant lymphoproliferative disorder [Unknown]
  - Fungal endocarditis [Unknown]
  - Blood alkaline phosphatase increased [Unknown]
  - Cholecystitis [Recovered/Resolved]
  - Drug ineffective [Unknown]
  - Gamma-glutamyltransferase increased [Unknown]
  - Sepsis [Unknown]
  - Gallbladder perforation [Recovered/Resolved]
  - Peritoneal haemorrhage [Recovered/Resolved]
  - Transaminases increased [Unknown]
